FAERS Safety Report 5210831-6 (Version None)
Quarter: 2007Q1

REPORT INFORMATION
  Report Type: 
  Country: None (occurrence: None)
  Receive Date: 20070117
  Receipt Date: 20070108
  Transmission Date: 20070707
  Serious: Yes (Other)
  Sender: FDA-Public Use
  Company Number: US-PFIZER INC-2007002477

PATIENT
  Sex: Female
  Weight: 83.9 kg

DRUGS (2)
  1. BEXTRA [Suspect]
     Indication: INFLAMMATION
  2. BEXTRA [Suspect]
     Indication: HYPERTENSION

REACTIONS (4)
  - AMNESIA [None]
  - CEREBROVASCULAR ACCIDENT [None]
  - HEADACHE [None]
  - HYPOACUSIS [None]
